FAERS Safety Report 18735221 (Version 1)
Quarter: 2021Q1

REPORT INFORMATION
  Report Type: Report from Study
  Country: None (occurrence: US)
  Receive Date: 20210113
  Receipt Date: 20210113
  Transmission Date: 20210419
  Serious: Yes (Hospitalization)
  Sender: FDA-Public Use
  Company Number: US-ABBVIE-21K-163-3728130-00

PATIENT
  Sex: Male

DRUGS (10)
  1. NAPROXEN. [Concomitant]
     Active Substance: NAPROXEN
     Indication: PRODUCT USED FOR UNKNOWN INDICATION
  2. VENCLEXTA [Suspect]
     Active Substance: VENETOCLAX
     Route: 048
  3. VENCLEXTA [Suspect]
     Active Substance: VENETOCLAX
     Indication: CHRONIC LYMPHOCYTIC LEUKAEMIA
     Dosage: 2?10MG TABS BY MOUTH DAILY X7 DAYS
     Route: 048
     Dates: start: 20200822, end: 20200828
  4. VENCLEXTA [Suspect]
     Active Substance: VENETOCLAX
     Dosage: 1?50MG TAB DAILY X7 DAYS
     Route: 048
     Dates: start: 20200829, end: 20200905
  5. VENCLEXTA [Suspect]
     Active Substance: VENETOCLAX
     Dosage: 1?100MG TAB DAILY X7 DAYS
     Route: 048
     Dates: start: 20200906, end: 20200912
  6. ATORVASTATIN CALCIUM. [Concomitant]
     Active Substance: ATORVASTATIN CALCIUM
     Indication: PRODUCT USED FOR UNKNOWN INDICATION
  7. DIPHENHYDRAMINE. [Concomitant]
     Active Substance: DIPHENHYDRAMINE
     Indication: PRODUCT USED FOR UNKNOWN INDICATION
  8. VENCLEXTA [Suspect]
     Active Substance: VENETOCLAX
     Dosage: 2?100MG TABS DAILY X7 DAYS
     Route: 048
     Dates: start: 20200913, end: 20200919
  9. VENCLEXTA [Suspect]
     Active Substance: VENETOCLAX
     Route: 048
     Dates: start: 20200920
  10. ASPIRIN. [Concomitant]
     Active Substance: ASPIRIN
     Indication: PRODUCT USED FOR UNKNOWN INDICATION

REACTIONS (1)
  - Pneumonia [Unknown]
